FAERS Safety Report 4720755-6 (Version None)
Quarter: 2005Q3

REPORT INFORMATION
  Report Type: 
  Country: None (occurrence: None)
  Receive Date: 20050719
  Receipt Date: 20050630
  Transmission Date: 20060218
  Serious: Yes (Other)
  Sender: FDA-Public Use
  Company Number: US_0411107702

PATIENT
  Age: 60 Year
  Sex: Female
  Weight: 90 kg

DRUGS (23)
  1. ZYPREXA [Suspect]
     Indication: DEPRESSION
     Dosage: 5 MG AT BEDTIME
     Dates: start: 19970217
  2. SERTRALINE HCL [Concomitant]
  3. GLIPIZIDE [Concomitant]
  4. GLYBURIDE AND METFORMIN HCL [Concomitant]
  5. RESTORIL [Concomitant]
  6. TIMOLOL MALEATE [Concomitant]
  7. DILTIAZEM [Concomitant]
  8. ESTRADIOL [Concomitant]
  9. MEDROXYPROGESTERONE [Concomitant]
  10. CEFACLOR [Concomitant]
  11. ATENOLOL [Concomitant]
  12. GLYBURIDE [Concomitant]
  13. PSEUDOEPHEDRINE HCL [Concomitant]
  14. ZYRTEC [Concomitant]
  15. HYDROCODONE W/APAP [Concomitant]
  16. PENICILINA V [Concomitant]
  17. FOLIC ACID [Concomitant]
  18. AMOXICILLIN [Concomitant]
  19. CELEBREX [Concomitant]
  20. TIMOLOL MALEATE [Concomitant]
  21. CLONIDINE [Concomitant]
  22. NAPROXEN SODIUM [Concomitant]
  23. TEMAZEPAM [Concomitant]

REACTIONS (4)
  - BLOOD CHOLESTEROL ABNORMAL [None]
  - DIABETES MELLITUS NON-INSULIN-DEPENDENT [None]
  - HYPERTENSION [None]
  - MACULAR HOLE [None]
